FAERS Safety Report 17266687 (Version 1)
Quarter: 2020Q1

REPORT INFORMATION
  Report Type: Spontaneous
  Country: US (occurrence: US)
  Receive Date: 20200114
  Receipt Date: 20200114
  Transmission Date: 20200409
  Serious: Yes (Death, Other)
  Sender: FDA-Public Use
  Company Number: US-APOTEX-2020AP005640

PATIENT
  Age: 22 Year
  Sex: Female

DRUGS (6)
  1. FENTANYL. [Suspect]
     Active Substance: FENTANYL
     Indication: PRODUCT USED FOR UNKNOWN INDICATION
     Dosage: UNK, UNKNOWN
     Route: 048
  2. AMITRIPTYLINE [Suspect]
     Active Substance: AMITRIPTYLINE
     Indication: PRODUCT USED FOR UNKNOWN INDICATION
     Dosage: UNK UNK, UNKNOWN
     Route: 048
  3. COCAINE [Suspect]
     Active Substance: COCAINE
     Indication: PRODUCT USED FOR UNKNOWN INDICATION
     Dosage: UNK, UNKNOWN
     Route: 048
  4. FENTANYL. [Suspect]
     Active Substance: FENTANYL
     Dosage: UNK, UNKNOWN (ROUTE:INHALATION)
     Route: 055
  5. AMITRIPTYLINE [Suspect]
     Active Substance: AMITRIPTYLINE
     Dosage: UNK, UNKNOWN,  (ROUTE:INHALATION)
     Route: 055
  6. COCAINE [Suspect]
     Active Substance: COCAINE
     Dosage: UNK, UNKNOWN, (ROUTE:INHALATION)
     Route: 055

REACTIONS (1)
  - Drug abuse [Fatal]
